FAERS Safety Report 9286219 (Version 2)
Quarter: 2013Q2

REPORT INFORMATION
  Report Type: Spontaneous
  Country: US (occurrence: US)
  Receive Date: 20130513
  Receipt Date: 20130611
  Transmission Date: 20140414
  Serious: Yes (Other)
  Sender: FDA-Public Use
  Company Number: US-GLAXOSMITHKLINE-A1023246A

PATIENT
  Age: 70 Year
  Sex: Male

DRUGS (1)
  1. VOTRIENT [Suspect]
     Indication: CHRONIC MYELOID LEUKAEMIA
     Dosage: 200MG UNKNOWN
     Route: 065

REACTIONS (10)
  - Bile duct stent insertion [Unknown]
  - Local swelling [Recovering/Resolving]
  - Biliary tract disorder [Unknown]
  - Blood bilirubin increased [Recovered/Resolved]
  - Fatigue [Unknown]
  - Nausea [Unknown]
  - Arthralgia [Unknown]
  - Myalgia [Unknown]
  - Pain in extremity [Unknown]
  - Drug ineffective [Unknown]
